FAERS Safety Report 7710673-3 (Version None)
Quarter: 2011Q3

REPORT INFORMATION
  Report Type: 
  Country: None (occurrence: None)
  Receive Date: 20110825
  Receipt Date: 20110818
  Transmission Date: 20111222
  Serious: Yes (Hospitalization, Other)
  Sender: FDA-Public Use
  Company Number: DE-PFIZER INC-2011185030

PATIENT
  Age: 46 Year
  Sex: Male

DRUGS (4)
  1. TESTOSTERONE [Concomitant]
     Indication: HYPERANDROGENISM
     Dosage: UNK
     Route: 030
  2. VENLAFAXINE HYDROCHLORIDE [Concomitant]
     Dosage: 300 MG, 1X/DAY
  3. CABERGOLINE [Suspect]
     Indication: PROLACTINOMA
     Dosage: 0.25 MG, WEEKLY
  4. PREGABALIN [Suspect]
     Indication: IMPULSIVE BEHAVIOUR
     Dosage: 150 MG, 1X/DAY

REACTIONS (2)
  - PATHOLOGICAL GAMBLING [None]
  - FATIGUE [None]
